FAERS Safety Report 11079191 (Version 2)
Quarter: 2015Q3

REPORT INFORMATION
  Report Type: Spontaneous
  Country: AU (occurrence: AU)
  Receive Date: 20150430
  Receipt Date: 20150723
  Transmission Date: 20151125
  Serious: Yes (Hospitalization, Other)
  Sender: FDA-Public Use
  Company Number: AU-009507513-1504AUS023716

PATIENT
  Age: 54 Year
  Sex: Female

DRUGS (10)
  1. SIMVASTATIN. [Suspect]
     Active Substance: SIMVASTATIN
     Dosage: 300 MG
     Route: 048
  2. OXAZEPAM. [Suspect]
     Active Substance: OXAZEPAM
     Dosage: 600 MG
  3. QUININE [Suspect]
     Active Substance: QUININE
     Dosage: 6000 MG
  4. METFORMIN [Suspect]
     Active Substance: METFORMIN HYDROCHLORIDE
     Dosage: 35 G
  5. ACETAMINOPHEN. [Suspect]
     Active Substance: ACETAMINOPHEN
     Dosage: 10000 MG
  6. DOTHIEPIN HYDROCHLORIDE [Suspect]
     Active Substance: DOTHIEPIN HYDROCHLORIDE
     Dosage: 2250 MG
  7. ENALAPRIL MALEATE. [Suspect]
     Active Substance: ENALAPRIL MALEATE
     Dosage: 300 MG
     Route: 048
  8. CODEINE [Suspect]
     Active Substance: CODEINE
     Dosage: 600 MG
  9. RANITIDINE [Suspect]
     Active Substance: RANITIDINE\RANITIDINE HYDROCHLORIDE
     Dosage: 750 MG
  10. THIORIDAZINE [Suspect]
     Active Substance: THIORIDAZINE
     Dosage: 5000 MG

REACTIONS (4)
  - Overdose [Unknown]
  - Hypotension [Unknown]
  - Coma [Unknown]
  - Tachycardia [Unknown]
